FAERS Safety Report 12797766 (Version 3)
Quarter: 2016Q4

REPORT INFORMATION
  Report Type: Report from Study
  Country: US (occurrence: US)
  Receive Date: 20160930
  Receipt Date: 20161109
  Transmission Date: 20170207
  Serious: No
  Sender: FDA-Public Use
  Company Number: PHEH2016US024655

PATIENT
  Sex: Male

DRUGS (1)
  1. COSENTYX [Suspect]
     Active Substance: SECUKINUMAB
     Indication: PSORIASIS
     Dosage: 300 MG, QMO
     Route: 058
     Dates: start: 20160628

REACTIONS (5)
  - Device malfunction [Unknown]
  - Device issue [Unknown]
  - Incorrect dose administered [Unknown]
  - No adverse event [Unknown]
  - Accidental exposure to product [Unknown]
